FAERS Safety Report 7231655-4 (Version None)
Quarter: 2011Q1

REPORT INFORMATION
  Report Type: 
  Country: None (occurrence: None)
  Receive Date: 20110118
  Receipt Date: 20110112
  Transmission Date: 20110831
  Serious: Yes (Other)
  Sender: FDA-Public Use
  Company Number: US-PFIZER INC-2011008239

PATIENT
  Sex: Female

DRUGS (2)
  1. NEURONTIN [Suspect]
     Indication: MOOD SWINGS
     Dosage: 300 MG, 3X/DAY
     Route: 048
     Dates: start: 20101207, end: 20101211
  2. NEURONTIN [Suspect]
     Dosage: 300 MG, 4X/DAY
     Route: 048
     Dates: start: 20101211

REACTIONS (8)
  - HOSTILITY [None]
  - ANXIETY [None]
  - OEDEMA PERIPHERAL [None]
  - DEPRESSION [None]
  - TOOTH DISORDER [None]
  - EMOTIONAL DISORDER [None]
  - PAIN IN EXTREMITY [None]
  - GINGIVAL DISORDER [None]
